FAERS Safety Report 9481092 (Version 1)
Quarter: 2013Q3

REPORT INFORMATION
  Report Type: Spontaneous
  Country: US (occurrence: US)
  Receive Date: 20130828
  Receipt Date: 20130828
  Transmission Date: 20140515
  Serious: Yes (Other)
  Sender: FDA-Public Use
  Company Number: US-AMGEN-KDL152904

PATIENT
  Age: 51 Year
  Sex: Female

DRUGS (2)
  1. ENBREL [Suspect]
     Indication: RHEUMATOID ARTHRITIS
     Dosage: 25 MG, Q3WK
     Route: 058
     Dates: start: 19990101
  2. ENBREL [Suspect]
     Dosage: 25 MG, Q3WK
     Route: 058
     Dates: start: 19990101

REACTIONS (5)
  - Herpes zoster [Unknown]
  - Dysphagia [Recovered/Resolved]
  - Candida infection [Recovered/Resolved]
  - Sinusitis [Unknown]
  - Rash erythematous [Unknown]
